FAERS Safety Report 17558935 (Version 1)
Quarter: 2020Q1

REPORT INFORMATION
  Report Type: Spontaneous
  Country: IT (occurrence: IT)
  Receive Date: 20200319
  Receipt Date: 20200319
  Transmission Date: 20200409
  Serious: Yes (Other)
  Sender: FDA-Public Use
  Company Number: IT-ROCHE-2568815

PATIENT
  Age: 80 Year
  Sex: Male
  Weight: 65 kg

DRUGS (6)
  1. NORMIX [Concomitant]
     Active Substance: RIFAXIMIN
     Route: 048
  2. ESBRIET [Suspect]
     Active Substance: PIRFENIDONE
     Indication: IDIOPATHIC PULMONARY FIBROSIS
     Route: 048
     Dates: start: 20180502, end: 20190502
  3. LASIX [Concomitant]
     Active Substance: FUROSEMIDE
     Route: 048
  4. SAFLUTAN [Concomitant]
     Active Substance: TAFLUPROST
     Route: 047
  5. RIOPAN [MAGALDRATE] [Concomitant]
     Active Substance: MAGALDRATE
     Route: 048
  6. RANITIDINE. [Concomitant]
     Active Substance: RANITIDINE
     Route: 048

REACTIONS (1)
  - Erythema [Recovered/Resolved]

NARRATIVE: CASE EVENT DATE: 20190526
